FAERS Safety Report 8479690-2 (Version None)
Quarter: 2012Q2

REPORT INFORMATION
  Report Type: 
  Country: None (occurrence: None)
  Receive Date: 20120629
  Receipt Date: 20120615
  Transmission Date: 20120825
  Serious: Yes (Other)
  Sender: FDA-Public Use
  Company Number: NO-ELI_LILLY_AND_COMPANY-NO201206005458

PATIENT
  Age: 11 Year
  Sex: Female

DRUGS (2)
  1. STRATTERA [Suspect]
     Indication: HYPERKINESIA
     Dosage: 10 MG, UNKNOWN
     Route: 048
     Dates: end: 20111104
  2. STRATTERA [Suspect]
     Dosage: 18 MG, QD
     Dates: start: 20111105, end: 20111130

REACTIONS (3)
  - OBSESSIVE-COMPULSIVE DISORDER [None]
  - ANXIETY [None]
  - OFF LABEL USE [None]
